FAERS Safety Report 9520229 (Version 1)
Quarter: 2013Q3

REPORT INFORMATION
  Report Type: Spontaneous
  Country: US (occurrence: US)
  Receive Date: 20130912
  Receipt Date: 20130912
  Transmission Date: 20140515
  Serious: No
  Sender: FDA-Public Use
  Company Number: US-TEVA-431413USA

PATIENT
  Age: 58 Year
  Sex: Female

DRUGS (7)
  1. TREANDA [Suspect]
     Indication: B-CELL LYMPHOMA
     Route: 042
     Dates: start: 201306
  2. TREANDA [Suspect]
     Dosage: CYCLE 4
     Route: 042
     Dates: start: 20130906
  3. RITUXIMAB [Concomitant]
     Indication: B-CELL LYMPHOMA
     Dosage: CYCLE 4
     Route: 042
     Dates: start: 20130906
  4. RITUXIMAB [Concomitant]
     Route: 042
  5. ZOFRAN [Concomitant]
     Indication: PRODUCT USED FOR UNKNOWN INDICATION
  6. CALCIUM [Concomitant]
     Indication: MEDICAL DIET
  7. MVI [Concomitant]
     Indication: MEDICAL DIET

REACTIONS (1)
  - Blood triglycerides increased [Unknown]
